FAERS Safety Report 5389807-4 (Version None)
Quarter: 2007Q3

REPORT INFORMATION
  Report Type: 
  Country: None (occurrence: None)
  Receive Date: 20070716
  Receipt Date: 20070126
  Transmission Date: 20080115
  Serious: Yes (Life-Threatening, Hospitalization)
  Sender: FDA-Public Use
  Company Number: MPS1-10643

PATIENT
  Age: 22 Year
  Sex: Male
  Weight: 61 kg

DRUGS (2)
  1. ALDURAZYME [Suspect]
     Indication: MUCOPOLYSACCHARIDOSIS I
     Dosage: 100 U/KG QWK IV
     Route: 042
     Dates: start: 20050101
  2. ALDURAZYME [Suspect]
     Indication: MUCOPOLYSACCHARIDOSIS I
     Dosage: 100 U/KG QWK, IV
     Route: 042
     Dates: start: 20010111, end: 20050101

REACTIONS (3)
  - BLISTER [None]
  - ENDOCARDITIS [None]
  - SEPSIS [None]
